FAERS Safety Report 8079068-X (Version None)
Quarter: 2012Q1

REPORT INFORMATION
  Report Type: 
  Country: None (occurrence: None)
  Receive Date: 20120128
  Receipt Date: 20110814
  Transmission Date: 20120608
  Serious: No
  Sender: FDA-Public Use
  Company Number: US-ABBOTT-11P-163-0847144-00

PATIENT
  Sex: Female
  Weight: 74.456 kg

DRUGS (12)
  1. HUMIRA [Suspect]
     Indication: RHEUMATOID ARTHRITIS
     Route: 058
     Dates: start: 20110601
  2. ZOLPIDEM [Concomitant]
     Indication: FIBROMYALGIA
  3. NAPROXEN [Concomitant]
     Indication: RHEUMATOID ARTHRITIS
  4. PROPRANOLOL [Concomitant]
     Indication: ESSENTIAL TREMOR
  5. PREDNISONE TAB [Concomitant]
     Indication: RHEUMATOID ARTHRITIS
  6. VICODIN [Concomitant]
     Indication: PAIN
  7. ZOLPIDEM [Concomitant]
     Indication: INSOMNIA
     Dosage: AT BEDTIME
  8. DOXEPIN [Concomitant]
     Indication: FIBROMYALGIA
  9. TOPAMAX [Concomitant]
     Indication: MIGRAINE
  10. NIZATIDINE [Concomitant]
     Indication: PROPHYLAXIS AGAINST GASTROINTESTINAL ULCER
  11. LEVOTHYROXINE SODIUM [Concomitant]
     Indication: HYPOTHYROIDISM
  12. PROPRANOLOL [Concomitant]
     Indication: PALPITATIONS

REACTIONS (4)
  - DYSPNOEA [None]
  - INFECTION [None]
  - OEDEMA PERIPHERAL [None]
  - PAINFUL RESPIRATION [None]
